FAERS Safety Report 5197246-4 (Version None)
Quarter: 2007Q1

REPORT INFORMATION
  Report Type: 
  Country: None (occurrence: None)
  Receive Date: 20070103
  Receipt Date: 20061228
  Transmission Date: 20070707
  Serious: Yes (Hospitalization)
  Sender: FDA-Public Use
  Company Number: US-MERCK-0612USA04184

PATIENT
  Age: 79 Year
  Sex: Female

DRUGS (5)
  1. FOSAMAX [Suspect]
     Indication: OSTEOPOROSIS
     Route: 048
     Dates: start: 20050101, end: 20060101
  2. ATENOLOL [Concomitant]
     Route: 065
  3. PRILOSEC [Concomitant]
     Route: 065
  4. VITAMINS (UNSPECIFIED) [Concomitant]
     Route: 065
  5. SYNTHROID [Concomitant]
     Route: 065

REACTIONS (1)
  - HAEMORRHAGE [None]
